FAERS Safety Report 9835351 (Version 2)
Quarter: 2014Q1

REPORT INFORMATION
  Report Type: Spontaneous
  Country: US (occurrence: US)
  Receive Date: 20140122
  Receipt Date: 20140122
  Transmission Date: 20141002
  Serious: No
  Sender: FDA-Public Use
  Company Number: US-BRISTOL-MYERS SQUIBB COMPANY-19492552

PATIENT
  Age: 78 Year
  Sex: Female
  Weight: 68.93 kg

DRUGS (14)
  1. ELIQUIS [Suspect]
     Indication: ATRIAL FIBRILLATION
     Dosage: BATCH LOT NUMBER-2D69589A
     Dates: start: 201309
  2. MUCINEX [Concomitant]
     Indication: RESPIRATORY TRACT CONGESTION
  3. BENADRYL [Concomitant]
  4. CALCIUM [Concomitant]
     Dosage: CHEWABLE
  5. CENTRUM [Concomitant]
  6. DEMADEX [Concomitant]
  7. K-DUR [Concomitant]
     Dosage: 1 DF: 10TABS
  8. NEXIUM [Concomitant]
  9. SPIRIVA [Concomitant]
  10. VYTORIN 10/40 [Concomitant]
  11. CARDIZEM [Concomitant]
     Dosage: CARDIZEM CR
  12. XOPENEX [Concomitant]
  13. PULMICORT [Concomitant]
  14. OXYGEN [Concomitant]
     Dosage: AT NIGHT

REACTIONS (1)
  - International normalised ratio abnormal [Unknown]
